FAERS Safety Report 16950053 (Version 1)
Quarter: 2019Q4

REPORT INFORMATION
  Report Type: Other
  Country: CA (occurrence: CA)
  Receive Date: 20191023
  Receipt Date: 20191023
  Transmission Date: 20200122
  Serious: Yes (Life-Threatening, Other)
  Sender: FDA-Public Use
  Company Number: CA-APOTEX-2019AP023681

PATIENT
  Age: 1 Month
  Sex: Male
  Weight: 3 kg

DRUGS (2)
  1. SYNTHROID [Concomitant]
     Active Substance: LEVOTHYROXINE SODIUM
     Indication: PRODUCT USED FOR UNKNOWN INDICATION
     Dosage: UNK
     Route: 065
  2. APO-PAROXETINE [Suspect]
     Active Substance: PAROXETINE
     Indication: DEPRESSION
     Dosage: UNK, QD
     Route: 064

REACTIONS (1)
  - Congenital pulmonary hypertension [Recovered/Resolved]
